FAERS Safety Report 8284249-6 (Version None)
Quarter: 2012Q2

REPORT INFORMATION
  Report Type: 
  Country: None (occurrence: None)
  Receive Date: 20120413
  Receipt Date: 20120124
  Transmission Date: 20120825
  Serious: No
  Sender: FDA-Public Use
  Company Number: US-ASTRAZENECA-2012SE04782

PATIENT
  Age: 73 Year
  Sex: Female
  Weight: 76.2 kg

DRUGS (7)
  1. NEXIUM [Suspect]
     Route: 048
     Dates: start: 20110601
  2. CODEINE [Concomitant]
     Indication: COUGH
  3. NEXIUM [Suspect]
     Indication: GASTROOESOPHAGEAL REFLUX DISEASE
     Route: 048
     Dates: start: 20050101
  4. NEXIUM [Suspect]
     Indication: GASTRITIS
     Route: 048
     Dates: start: 20050101
  5. NEXIUM [Suspect]
     Route: 048
     Dates: start: 20110601
  6. NEXIUM [Suspect]
     Route: 048
     Dates: start: 20110601
  7. NEXIUM [Suspect]
     Indication: HAEMATOCHEZIA
     Route: 048
     Dates: start: 20050101

REACTIONS (8)
  - OSTEOPOROSIS [None]
  - DYSPHAGIA [None]
  - ARTHRITIS [None]
  - ANORECTAL DISCOMFORT [None]
  - OFF LABEL USE [None]
  - DRUG INEFFECTIVE [None]
  - GASTROOESOPHAGEAL REFLUX DISEASE [None]
  - THINKING ABNORMAL [None]
